FAERS Safety Report 15822214 (Version 1)
Quarter: 2018Q4

REPORT INFORMATION
  Report Type: Spontaneous
  Country: US (occurrence: US)
  Receive Date: 20181214
  Receipt Date: 20181214
  Transmission Date: 20190205
  Serious: Yes (Hospitalization)
  Sender: FDA-Public Use
  Company Number: None

PATIENT
  Age: 74 Year
  Sex: Male
  Weight: 113.85 kg

DRUGS (2)
  1. IRINOTECAN [Suspect]
     Active Substance: IRINOTECAN
     Indication: SMALL CELL LUNG CANCER METASTATIC
     Route: 042
     Dates: start: 20180920, end: 20180920
  2. IRINOTECAN [Suspect]
     Active Substance: IRINOTECAN
     Indication: METASTASES TO LIVER
     Route: 042
     Dates: start: 20180920, end: 20180920

REACTIONS (3)
  - Ileus [None]
  - Leukopenia [None]
  - Febrile neutropenia [None]

NARRATIVE: CASE EVENT DATE: 20180920
